FAERS Safety Report 7286340-X (Version None)
Quarter: 2011Q1

REPORT INFORMATION
  Report Type: 
  Country: None (occurrence: None)
  Receive Date: 20110126
  Receipt Date: 20110119
  Transmission Date: 20110831
  Serious: Yes (Hospitalization)
  Sender: FDA-Public Use
  Company Number: 2009AC000115

PATIENT
  Age: 53 Year
  Sex: Male
  Weight: 180.9 kg

DRUGS (16)
  1. FOSINOPRIL SODIUM [Concomitant]
  2. OMEPRAZOLE [Concomitant]
  3. PRILOSEC [Concomitant]
  4. CAPOTEN [Concomitant]
  5. AMIODARONE [Concomitant]
  6. DIGOXIN [Suspect]
     Dosage: 0.250 MG;QD;PO
     Route: 048
     Dates: start: 20080313, end: 20081101
  7. DILTIAZEM [Concomitant]
  8. LOPRESSOR [Concomitant]
  9. LISINOPRIL [Concomitant]
  10. LOVENOX [Concomitant]
  11. DARVOCET [Concomitant]
  12. WELLBUTRIN [Concomitant]
  13. WARFARIN SODIUM [Concomitant]
  14. FUROSEMIDE [Concomitant]
  15. MECLIZINE [Concomitant]
  16. METOCLOPRAMIDE [Concomitant]

REACTIONS (23)
  - MULTIPLE INJURIES [None]
  - DIZZINESS [None]
  - HEADACHE [None]
  - SINUS BRADYCARDIA [None]
  - DYSKINESIA [None]
  - FALL [None]
  - ATRIAL THROMBOSIS [None]
  - ECONOMIC PROBLEM [None]
  - INTERNATIONAL NORMALISED RATIO DECREASED [None]
  - VERTIGO POSITIONAL [None]
  - MALAISE [None]
  - GLYCOSYLATED HAEMOGLOBIN INCREASED [None]
  - DYSPNOEA EXERTIONAL [None]
  - RESTLESS LEGS SYNDROME [None]
  - MITRAL VALVE INCOMPETENCE [None]
  - BRAIN NATRIURETIC PEPTIDE INCREASED [None]
  - FATIGUE [None]
  - PALPITATIONS [None]
  - TRICUSPID VALVE INCOMPETENCE [None]
  - BALANCE DISORDER [None]
  - CONSTIPATION [None]
  - AORTIC VALVE INCOMPETENCE [None]
  - ELECTROCARDIOGRAM ST-T CHANGE [None]
